FAERS Safety Report 9052853 (Version 1)
Quarter: 2013Q1

REPORT INFORMATION
  Report Type: Report from Study
  Country: BR (occurrence: BR)
  Receive Date: 20130207
  Receipt Date: 20130207
  Transmission Date: 20140127
  Serious: Yes (Other)
  Sender: FDA-Public Use
  Company Number: BR-ABBOTT-12P-020-0998170-00

PATIENT
  Sex: Female
  Weight: 56 kg

DRUGS (2)
  1. HUMIRA [Suspect]
     Indication: CROHN^S DISEASE
     Dosage: 4 INJECTIONS ON THE SAME DAY
     Route: 058
     Dates: start: 20100611
  2. AZATHIOPRINE [Concomitant]

REACTIONS (1)
  - Large intestinal stenosis [Recovered/Resolved]
